FAERS Safety Report 8789584 (Version 1)
Quarter: 2012Q4

REPORT INFORMATION
  Report Type: Spontaneous
  Country: US (occurrence: None)
  Receive Date: 20120910
  Receipt Date: 20120910
  Transmission Date: 20130627
  Serious: No
  Sender: FDA-Public Use
  Company Number: None

PATIENT
  Age: 53 Year
  Weight: 86.18 kg

DRUGS (1)
  1. LEVAQUIN [Suspect]
     Indication: SINUS INFECTION
     Dates: start: 20120629, end: 20120705

REACTIONS (5)
  - Pain in extremity [None]
  - Pain in extremity [None]
  - Muscular weakness [None]
  - Arthralgia [None]
  - Rotator cuff syndrome [None]
